FAERS Safety Report 11581185 (Version 1)
Quarter: 2015Q4

REPORT INFORMATION
  Report Type: Spontaneous
  Country: US (occurrence: US)
  Receive Date: 20151001
  Receipt Date: 20151001
  Transmission Date: 20160304
  Serious: No
  Sender: FDA-Public Use
  Company Number: US-ROCHE-695068

PATIENT
  Age: 54 Year
  Sex: Female
  Weight: 78 kg

DRUGS (16)
  1. LANSOPRAZOLE. [Concomitant]
     Active Substance: LANSOPRAZOLE
     Dosage: DOSE: 30
     Route: 065
  2. SYNTHROID [Concomitant]
     Active Substance: LEVOTHYROXINE SODIUM
     Indication: THYROID THERAPY
     Route: 048
  3. PROZAC [Concomitant]
     Active Substance: FLUOXETINE HYDROCHLORIDE
     Dosage: DOSE: 40
     Route: 048
  4. TRAZODONE [Concomitant]
     Active Substance: TRAZODONE HYDROCHLORIDE
     Dosage: DOSE: 300
     Route: 048
  5. HCTZ [Concomitant]
     Active Substance: HYDROCHLOROTHIAZIDE
     Route: 048
  6. PEGASYS [Suspect]
     Active Substance: PEGINTERFERON ALFA-2A
     Dosage: PREFILLED SYRINGE
     Route: 058
     Dates: start: 20100317, end: 20100503
  7. COPEGUS [Suspect]
     Active Substance: RIBAVIRIN
     Indication: HEPATITIS C
     Dosage: DIVIDE DOSE, 3 TABS, BID
     Route: 048
     Dates: start: 20100317, end: 20100330
  8. RIBAVIRIN. [Suspect]
     Active Substance: RIBAVIRIN
     Indication: HEPATITIS C
     Route: 065
  9. COZAAR [Concomitant]
     Active Substance: LOSARTAN POTASSIUM
     Dosage: DOSE: 50
     Route: 048
  10. RIBAVIRIN. [Suspect]
     Active Substance: RIBAVIRIN
     Route: 065
     Dates: start: 20100330, end: 20100505
  11. ATIVAN [Concomitant]
     Active Substance: LORAZEPAM
     Route: 048
  12. PEGASYS [Suspect]
     Active Substance: PEGINTERFERON ALFA-2A
     Indication: HEPATITIS C
     Route: 058
  13. METHADONE [Concomitant]
     Active Substance: METHADONE HYDROCHLORIDE
     Route: 065
  14. METFORMIN [Concomitant]
     Active Substance: METFORMIN HYDROCHLORIDE
     Indication: DIABETES MELLITUS
     Dosage: DOSE: 500
     Route: 048
  15. XALATAN [Concomitant]
     Active Substance: LATANOPROST
     Route: 065
  16. AMITIZA [Concomitant]
     Active Substance: LUBIPROSTONE
     Route: 065

REACTIONS (9)
  - Abdominal discomfort [Recovered/Resolved]
  - Cardiac disorder [Not Recovered/Not Resolved]
  - Hypertension [Not Recovered/Not Resolved]
  - Tinnitus [Unknown]
  - Muscle tightness [Recovered/Resolved]
  - Diabetes mellitus [Not Recovered/Not Resolved]
  - Muscular weakness [Unknown]
  - Myalgia [Unknown]
  - Neuropathy peripheral [Unknown]

NARRATIVE: CASE EVENT DATE: 20100324
